FAERS Safety Report 10218909 (Version 1)
Quarter: 2014Q2

REPORT INFORMATION
  Report Type: Spontaneous
  Country: CA (occurrence: None)
  Receive Date: 20140603
  Receipt Date: 20140603
  Transmission Date: 20141212
  Serious: Yes (Other)
  Sender: FDA-Public Use
  Company Number: 2014000170

PATIENT
  Age: 64 Year
  Sex: Female

DRUGS (6)
  1. ACEON (PERINDOPRIL ERBUMINE) TABLET, 2MG [Suspect]
     Indication: PRODUCT USED FOR UNKNOWN INDICATION
     Route: 048
  2. PACLITAXEL (PACLITAXEL) [Suspect]
     Indication: PRODUCT USED FOR UNKNOWN INDICATION
  3. TRASTUZUMAB (TRASTUZUMAB) [Suspect]
     Indication: PRODUCT USED FOR UNKNOWN INDICATION
  4. LESEC (OMEPRAZOLE) [Concomitant]
  5. OMEPRAZOLE (OMEPRAZOLE) [Concomitant]
  6. PREDNISONE (PREDNISOE) [Concomitant]

REACTIONS (3)
  - Ejection fraction decreased [None]
  - Immune thrombocytopenic purpura [None]
  - Contusion [None]
